FAERS Safety Report 22605190 (Version 1)
Quarter: 2023Q2

REPORT INFORMATION
  Report Type: Spontaneous
  Country: US (occurrence: None)
  Receive Date: 20230614
  Receipt Date: 20230614
  Transmission Date: 20230722
  Serious: Yes (Other)
  Sender: FDA-Public Use
  Company Number: None

PATIENT
  Age: 62 Year
  Sex: Female

DRUGS (1)
  1. SYSTANE COMPLETE PF [Suspect]
     Active Substance: PROPYLENE GLYCOL
     Indication: Dry eye
     Dosage: OTHER QUANTITY : 2 BOTTLE 10ML;?FREQUENCY : AS NEEDED;?
     Dates: start: 20230115, end: 20230515

REACTIONS (5)
  - Dry skin [None]
  - Skin atrophy [None]
  - Pruritus [None]
  - Erythema [None]
  - Eye pain [None]

NARRATIVE: CASE EVENT DATE: 20230415
